FAERS Safety Report 13379643 (Version 2)
Quarter: 2017Q1

REPORT INFORMATION
  Report Type: Report from Study
  Country: RU (occurrence: RU)
  Receive Date: 20170328
  Receipt Date: 20170329
  Transmission Date: 20170429
  Serious: Yes (Other)
  Sender: FDA-Public Use
  Company Number: RU-ELI_LILLY_AND_COMPANY-RU201703007753

PATIENT
  Sex: Female

DRUGS (1)
  1. FORSTEO [Suspect]
     Active Substance: TERIPARATIDE
     Indication: PRODUCT USED FOR UNKNOWN INDICATION
     Dosage: UNK, QD
     Route: 065
     Dates: start: 20170317

REACTIONS (10)
  - Blood parathyroid hormone decreased [Unknown]
  - Loss of consciousness [Unknown]
  - Pruritus [Recovered/Resolved]
  - Somnolence [Unknown]
  - Parathyroid disorder [Unknown]
  - Hypoparathyroidism [Unknown]
  - Dysstasia [Unknown]
  - Bone pain [Unknown]
  - Dizziness [Unknown]
  - Injection site pruritus [Recovered/Resolved]

NARRATIVE: CASE EVENT DATE: 20170317
